FAERS Safety Report 4340127-6 (Version None)
Quarter: 2004Q2

REPORT INFORMATION
  Report Type: 
  Country: None (occurrence: None)
  Receive Date: 20040416
  Receipt Date: 20040308
  Transmission Date: 20050107
  Serious: Yes (Other)
  Sender: FDA-Public Use
  Company Number: PHBS2004JP03425

PATIENT
  Age: 49 Year
  Sex: Female
  Weight: 61 kg

DRUGS (6)
  1. DIOVAN [Suspect]
     Indication: HYPERTENSION
     Dosage: 40 MG, QD
     Route: 048
     Dates: start: 20030512, end: 20040213
  2. MINIPRESS [Concomitant]
     Indication: HYPERTENSION
     Dosage: .5 MG, UNK
     Route: 048
     Dates: start: 20030512, end: 20040213
  3. BOUFUUTSUUSHOUSAN [Concomitant]
     Indication: OBESITY
     Dosage: 7.5 G, UNK
     Route: 048
     Dates: start: 20030731, end: 20040213
  4. BEZATOL - SLOW RELEASE [Concomitant]
     Indication: HYPERTRIGLYCERIDAEMIA
     Dosage: 400 MG, UNK
     Route: 048
     Dates: start: 20030811, end: 20040213
  5. BLUTAL [Concomitant]
     Indication: IRON DEFICIENCY ANAEMIA
     Dosage: 40 MG/DAY
     Route: 042
     Dates: start: 20031117, end: 20031218
  6. PARIET [Concomitant]
     Indication: ABDOMINAL PAIN UPPER
     Dosage: 10 MG/DAY
     Route: 048
     Dates: start: 20040101, end: 20040212

REACTIONS (10)
  - ABDOMINAL PAIN UPPER [None]
  - ALANINE AMINOTRANSFERASE INCREASED [None]
  - ASPARTATE AMINOTRANSFERASE INCREASED [None]
  - BLOOD ALKALINE PHOSPHATASE INCREASED [None]
  - BLOOD LACTATE DEHYDROGENASE INCREASED [None]
  - FATIGUE [None]
  - GAMMA-GLUTAMYLTRANSFERASE INCREASED [None]
  - HEPATIC FUNCTION ABNORMAL [None]
  - IRON DEFICIENCY ANAEMIA [None]
  - PLATELET COUNT DECREASED [None]
